FAERS Safety Report 6159227-3 (Version None)
Quarter: 2009Q2

REPORT INFORMATION
  Report Type: 
  Country: None (occurrence: None)
  Receive Date: 20090417
  Receipt Date: 20090406
  Transmission Date: 20091009
  Serious: Yes (Hospitalization, Other)
  Sender: FDA-Public Use
  Company Number: US-PFIZER INC-2008093904

PATIENT
  Sex: Male
  Weight: 86 kg

DRUGS (7)
  1. LYRICA [Suspect]
     Indication: NEUROPATHY PERIPHERAL
     Dates: start: 20081002, end: 20081006
  2. LYRICA [Suspect]
     Indication: HEADACHE
  3. EPINEPHRINE [Suspect]
     Indication: ANGIOEDEMA
     Dosage: UNK
     Dates: start: 20081001
  4. SOLU-MEDROL [Suspect]
     Indication: ANGIOEDEMA
     Dosage: UNK
     Dates: start: 20081001
  5. ADDERALL 10 [Concomitant]
  6. LORAZEPAM [Concomitant]
  7. CARBIDOPA AND LEVODOPA [Concomitant]

REACTIONS (11)
  - ANGIOEDEMA [None]
  - ATRIAL FIBRILLATION [None]
  - CARDIAC VALVE DISEASE [None]
  - CONFUSIONAL STATE [None]
  - DYSPNOEA [None]
  - HEADACHE [None]
  - HYPERSENSITIVITY [None]
  - MALAISE [None]
  - NAUSEA [None]
  - TONGUE OEDEMA [None]
  - VERTIGO [None]
